FAERS Safety Report 4620417-X (Version None)
Quarter: 2005Q1

REPORT INFORMATION
  Report Type: 
  Country: None (occurrence: None)
  Receive Date: 20050321
  Receipt Date: 20050321
  Transmission Date: 20050727
  Serious: No
  Sender: FDA-Public Use
  Company Number: None

PATIENT
  Age: 20 Year
  Sex: Male

DRUGS (5)
  1. DEPAKENE [Suspect]
     Indication: BIPOLAR DISORDER
     Dosage: 500 MG AM 1000 MG Q HS
     Dates: start: 20050306, end: 20050309
  2. ZYPREXA [Concomitant]
  3. HALDOL [Concomitant]
  4. ATIVIAN [Concomitant]
  5. THORAZINE [Concomitant]

REACTIONS (6)
  - AGGRESSION [None]
  - AGITATION [None]
  - ALANINE AMINOTRANSFERASE INCREASED [None]
  - AMMONIA INCREASED [None]
  - ASPARTATE AMINOTRANSFERASE INCREASED [None]
  - LABORATORY TEST ABNORMAL [None]
